FAERS Safety Report 6790125-8 (Version None)
Quarter: 2010Q2

REPORT INFORMATION
  Report Type: 
  Country: None (occurrence: None)
  Receive Date: 20100624
  Receipt Date: 20100614
  Transmission Date: 20101027
  Serious: Yes (Other)
  Sender: FDA-Public Use
  Company Number: US-NOVOPROD-310233

PATIENT
  Age: 16 Year
  Sex: Male
  Weight: 65.306 kg

DRUGS (2)
  1. NORDITROPIN FLEXPRO 10 MG/ML [Suspect]
     Indication: GROWTH HORMONE DEFICIENCY
     Dosage: 1.95 MG, QD
     Dates: start: 20081201, end: 20100401
  2. NORDITROPIN FLEXPRO 10 MG/ML [Suspect]
     Indication: BODY HEIGHT BELOW NORMAL
     Dosage: 2.2 MG, QD
     Dates: start: 20100401

REACTIONS (6)
  - CONNECTIVE TISSUE DISORDER [None]
  - FOOT FRACTURE [None]
  - INJURY [None]
  - MUSCLE INJURY [None]
  - REFUSAL OF TREATMENT BY RELATIVE [None]
  - SWELLING [None]
